FAERS Safety Report 16852958 (Version 2)
Quarter: 2019Q4

REPORT INFORMATION
  Report Type: Report from Study
  Country: US (occurrence: US)
  Receive Date: 20190925
  Receipt Date: 20191212
  Transmission Date: 20200122
  Serious: No
  Sender: FDA-Public Use
  Company Number: PHEH2019US039413

PATIENT
  Sex: Female

DRUGS (1)
  1. COSENTYX [Suspect]
     Active Substance: SECUKINUMAB
     Indication: PSORIASIS
     Dosage: 300 MG, QW
     Route: 058
     Dates: start: 20190909

REACTIONS (3)
  - Pruritus [Not Recovered/Not Resolved]
  - Thirst [Not Recovered/Not Resolved]
  - Injection site pain [Not Recovered/Not Resolved]
